FAERS Safety Report 8496945-6 (Version None)
Quarter: 2012Q3

REPORT INFORMATION
  Report Type: 
  Country: None (occurrence: None)
  Receive Date: 20120709
  Receipt Date: 20120627
  Transmission Date: 20120928
  Serious: Yes (Hospitalization, Other)
  Sender: FDA-Public Use
  Company Number: CO-ELI_LILLY_AND_COMPANY-CO201206004608

PATIENT
  Age: 65 Year
  Sex: Male

DRUGS (2)
  1. LOSARTAN POTASSIUM [Concomitant]
     Indication: HYPERTENSION
  2. BYETTA [Suspect]
     Dosage: 5 UG, UNK
     Route: 058
     Dates: start: 20120301

REACTIONS (6)
  - HYPOGLYCAEMIA [None]
  - DIZZINESS [None]
  - DEVICE MALFUNCTION [None]
  - NAUSEA [None]
  - BLOOD GLUCOSE DECREASED [None]
  - DECREASED APPETITE [None]
